FAERS Safety Report 6370308-1 (Version None)
Quarter: 2009Q3

REPORT INFORMATION
  Report Type: 
  Country: None (occurrence: None)
  Receive Date: 20090923
  Receipt Date: 20090914
  Transmission Date: 20100115
  Serious: Yes (Life-Threatening, Hospitalization)
  Sender: FDA-Public Use
  Company Number: JP-AMGEN-US357291

PATIENT
  Sex: Female
  Weight: 62 kg

DRUGS (6)
  1. ENBREL [Suspect]
     Indication: RHEUMATOID ARTHRITIS
     Dosage: 25 MG TWICE WEEKLY; LYOPHILIZED
     Route: 058
     Dates: start: 20080519, end: 20080818
  2. ENBREL [Suspect]
     Dosage: 25 MG TWICE WEEKLY; SOLUTION FOR INJECTION
     Route: 058
     Dates: start: 20080821, end: 20090713
  3. PREDNISOLONE [Concomitant]
     Indication: RHEUMATOID ARTHRITIS
     Route: 048
  4. AMOBAN [Concomitant]
     Route: 048
  5. RHEUMATREX [Concomitant]
     Indication: RHEUMATOID ARTHRITIS
     Route: 048
     Dates: start: 20040906, end: 20041111
  6. RHEUMATREX [Concomitant]
     Dosage: UNSPECIFIED
     Dates: start: 20041111

REACTIONS (1)
  - MECHANICAL ILEUS [None]
